FAERS Safety Report 6680314-5 (Version None)
Quarter: 2010Q2

REPORT INFORMATION
  Report Type: 
  Country: None (occurrence: None)
  Receive Date: 20100412
  Receipt Date: 20100330
  Transmission Date: 20101027
  Serious: Yes (Other)
  Sender: FDA-Public Use
  Company Number: 7000009

PATIENT
  Age: 34 Year
  Sex: Male
  Weight: 84 kg

DRUGS (1)
  1. REBIF [Suspect]
     Indication: RELAPSING-REMITTING MULTIPLE SCLEROSIS
     Dosage: 44 MCG, 3 IN 1 WK, SUBCUTANEOUS
     Route: 058
     Dates: start: 20071228

REACTIONS (6)
  - ABDOMINAL PAIN LOWER [None]
  - ARTHRALGIA [None]
  - BACK PAIN [None]
  - INJECTION SITE ERYTHEMA [None]
  - NO THERAPEUTIC RESPONSE [None]
  - OSTEONECROSIS [None]
